FAERS Safety Report 22331491 (Version 1)
Quarter: 2023Q2

REPORT INFORMATION
  Report Type: Report from Study
  Country: US (occurrence: None)
  Receive Date: 20230517
  Receipt Date: 20230517
  Transmission Date: 20230721
  Serious: Yes (Life-Threatening, Hospitalization, Other)
  Sender: FDA-Public Use
  Company Number: US-ROCHE-3349181

PATIENT

DRUGS (38)
  1. RITUXIMAB [Suspect]
     Active Substance: RITUXIMAB
     Indication: Burkitt^s lymphoma
     Dosage: SUBSEQUENT DOSES TAKEN ON 12/SEP/2014. 03/OCT/2014, 24/OCT/2014, 14/NOV/2014, 05/DEC/2014
     Route: 065
     Dates: start: 20140822, end: 20140822
  2. CYCLOPHOSPHAMIDE [Suspect]
     Active Substance: CYCLOPHOSPHAMIDE
     Indication: Burkitt^s lymphoma
     Route: 065
     Dates: start: 20140826, end: 20140826
  3. CYCLOPHOSPHAMIDE [Suspect]
     Active Substance: CYCLOPHOSPHAMIDE
     Route: 065
     Dates: start: 20140916, end: 20140916
  4. CYCLOPHOSPHAMIDE [Suspect]
     Active Substance: CYCLOPHOSPHAMIDE
     Route: 065
     Dates: start: 20141008, end: 20141008
  5. CYCLOPHOSPHAMIDE [Suspect]
     Active Substance: CYCLOPHOSPHAMIDE
     Route: 065
     Dates: start: 20141028, end: 20141028
  6. CYCLOPHOSPHAMIDE [Suspect]
     Active Substance: CYCLOPHOSPHAMIDE
     Route: 065
     Dates: start: 20141118, end: 20141118
  7. CYCLOPHOSPHAMIDE [Suspect]
     Active Substance: CYCLOPHOSPHAMIDE
     Route: 065
     Dates: start: 20141209, end: 20141209
  8. DOXORUBICIN [Suspect]
     Active Substance: DOXORUBICIN
     Indication: Burkitt^s lymphoma
     Route: 065
     Dates: start: 20140822, end: 20140825
  9. DOXORUBICIN [Suspect]
     Active Substance: DOXORUBICIN
     Route: 065
     Dates: start: 20140912, end: 20140916
  10. DOXORUBICIN [Suspect]
     Active Substance: DOXORUBICIN
     Route: 065
     Dates: start: 20141004, end: 20141007
  11. DOXORUBICIN [Suspect]
     Active Substance: DOXORUBICIN
     Route: 065
     Dates: start: 20141024, end: 20141028
  12. DOXORUBICIN [Suspect]
     Active Substance: DOXORUBICIN
     Route: 065
     Dates: start: 20141114, end: 20141118
  13. DOXORUBICIN [Suspect]
     Active Substance: DOXORUBICIN
     Route: 065
     Dates: start: 20141205, end: 20141209
  14. ETOPOSIDE [Suspect]
     Active Substance: ETOPOSIDE
     Indication: Burkitt^s lymphoma
     Route: 065
     Dates: start: 20140822, end: 20140825
  15. ETOPOSIDE [Suspect]
     Active Substance: ETOPOSIDE
     Route: 065
     Dates: start: 20140912, end: 20140916
  16. ETOPOSIDE [Suspect]
     Active Substance: ETOPOSIDE
     Route: 065
     Dates: start: 20141004, end: 20141007
  17. ETOPOSIDE [Suspect]
     Active Substance: ETOPOSIDE
     Route: 065
     Dates: start: 20141024, end: 20141028
  18. ETOPOSIDE [Suspect]
     Active Substance: ETOPOSIDE
     Route: 065
     Dates: start: 20141114, end: 20141118
  19. ETOPOSIDE [Suspect]
     Active Substance: ETOPOSIDE
     Route: 065
     Dates: start: 20141205, end: 20141209
  20. FILGRASTIM [Suspect]
     Active Substance: FILGRASTIM
     Indication: Burkitt^s lymphoma
     Dosage: 4800 MCG
     Route: 065
     Dates: start: 20140828, end: 20140910
  21. FILGRASTIM [Suspect]
     Active Substance: FILGRASTIM
     Dosage: 4800 MCG
     Route: 065
     Dates: start: 20140917, end: 20140926
  22. FILGRASTIM [Suspect]
     Active Substance: FILGRASTIM
     Dosage: 4800 MCG
     Route: 065
     Dates: start: 20141009, end: 20141016
  23. FILGRASTIM [Suspect]
     Active Substance: FILGRASTIM
     Dosage: 4800 MCG
     Route: 065
     Dates: start: 20141029, end: 20141107
  24. FILGRASTIM [Suspect]
     Active Substance: FILGRASTIM
     Dosage: 4800 MCG
     Route: 065
     Dates: start: 20141119, end: 20141128
  25. FILGRASTIM [Suspect]
     Active Substance: FILGRASTIM
     Dosage: 4800 MCG
     Route: 065
     Dates: start: 20141210, end: 20141219
  26. METHOTREXATE [Suspect]
     Active Substance: METHOTREXATE
     Indication: Burkitt^s lymphoma
     Dosage: SUBSEQUENT DOSES TAKEN ON 07/OCT/2014, 28/OCT/2014, 24/OCT/2014, 19/NOV/2014, 14/NOV/2014, 06/DEC/20
     Route: 065
     Dates: start: 20141003, end: 20141003
  27. PREDNISONE [Suspect]
     Active Substance: PREDNISONE
     Indication: Burkitt^s lymphoma
     Route: 065
     Dates: start: 20140822, end: 20140826
  28. PREDNISONE [Suspect]
     Active Substance: PREDNISONE
     Route: 065
     Dates: start: 20140912, end: 20140914
  29. PREDNISONE [Suspect]
     Active Substance: PREDNISONE
     Route: 065
     Dates: start: 20141003, end: 20141008
  30. PREDNISONE [Suspect]
     Active Substance: PREDNISONE
     Route: 065
     Dates: start: 20141024, end: 20141029
  31. PREDNISONE [Suspect]
     Active Substance: PREDNISONE
     Route: 065
     Dates: start: 20141114, end: 20141119
  32. PREDNISONE [Suspect]
     Active Substance: PREDNISONE
     Route: 065
     Dates: start: 20141205, end: 20141210
  33. VINCRISTINE [Suspect]
     Active Substance: VINCRISTINE
     Indication: Burkitt^s lymphoma
     Route: 065
     Dates: start: 20140822, end: 20140825
  34. VINCRISTINE [Suspect]
     Active Substance: VINCRISTINE
     Route: 065
     Dates: start: 20140912, end: 20140916
  35. VINCRISTINE [Suspect]
     Active Substance: VINCRISTINE
     Route: 065
     Dates: start: 20141004, end: 20141007
  36. VINCRISTINE [Suspect]
     Active Substance: VINCRISTINE
     Route: 065
     Dates: start: 20141024, end: 20141028
  37. VINCRISTINE [Suspect]
     Active Substance: VINCRISTINE
     Route: 065
     Dates: start: 20141114, end: 20141118
  38. VINCRISTINE [Suspect]
     Active Substance: VINCRISTINE
     Route: 065
     Dates: start: 20141205, end: 20141209

REACTIONS (6)
  - Hyponatraemia [Recovered/Resolved]
  - Pneumonia [Recovered/Resolved]
  - Febrile neutropenia [Recovered/Resolved]
  - Sepsis [Recovered/Resolved]
  - White blood cell count decreased [Recovered/Resolved]
  - Hypotension [Recovered/Resolved]

NARRATIVE: CASE EVENT DATE: 20140902
